APPROVED DRUG PRODUCT: VERQUVO
Active Ingredient: VERICIGUAT
Strength: 2.5MG
Dosage Form/Route: TABLET;ORAL
Application: N214377 | Product #001
Applicant: MERCK SHARP AND DOHME LLC
Approved: Jan 19, 2021 | RLD: Yes | RS: No | Type: RX

PATENTS:
Patent 9993476 | Expires: May 19, 2031
Patent 8921377 | Expires: May 19, 2031
Patent 9604948 | Expires: Nov 26, 2032
Patent 11439642 | Expires: May 19, 2031
Patent 10736896 | Expires: May 19, 2031
Patent 8420656 | Expires: May 19, 2031

EXCLUSIVITY:
Code: NCE | Date: Jan 19, 2026